FAERS Safety Report 6928538-3 (Version None)
Quarter: 2010Q3

REPORT INFORMATION
  Report Type: 
  Country: None (occurrence: None)
  Receive Date: 20100817
  Receipt Date: 20100812
  Transmission Date: 20110219
  Serious: Yes (Other)
  Sender: FDA-Public Use
  Company Number: US-ABBOTT-10P-163-0663055-00

PATIENT
  Sex: Male
  Weight: 109.87 kg

DRUGS (12)
  1. HUMIRA [Suspect]
     Indication: RHEUMATOID ARTHRITIS
     Route: 058
  2. ARAVA [Concomitant]
     Indication: RHEUMATOID ARTHRITIS
  3. AMLODIPINE [Concomitant]
     Indication: HYPERTENSION
     Route: 048
  4. ISOSORBIDE [Concomitant]
     Indication: PRODUCT USED FOR UNKNOWN INDICATION
     Route: 048
  5. RAMIPRIL [Concomitant]
     Indication: PRODUCT USED FOR UNKNOWN INDICATION
     Route: 048
  6. PREDNISONE [Concomitant]
     Indication: PRODUCT USED FOR UNKNOWN INDICATION
     Route: 048
  7. METOPROLOL TARTRATE [Concomitant]
     Indication: PRODUCT USED FOR UNKNOWN INDICATION
  8. FLEXERIL [Concomitant]
     Indication: BACK PAIN
  9. RESTORIL [Concomitant]
     Indication: PAIN
  10. RESTORIL [Concomitant]
     Indication: INSOMNIA
  11. METHOTREXATE [Concomitant]
     Indication: RHEUMATOID ARTHRITIS
     Dates: start: 20091001, end: 20100311
  12. ASULFADINE [Concomitant]
     Indication: RHEUMATOID ARTHRITIS

REACTIONS (8)
  - ANXIETY [None]
  - FATIGUE [None]
  - MUSCLE RUPTURE [None]
  - NODULE [None]
  - NODULE ON EXTREMITY [None]
  - PAIN [None]
  - RESTLESSNESS [None]
  - TREMOR [None]
